FAERS Safety Report 4485266-4 (Version None)
Quarter: 2004Q3

REPORT INFORMATION
  Report Type: 
  Country: None (occurrence: None)
  Receive Date: 20040921
  Receipt Date: 20040616
  Transmission Date: 20050211
  Serious: Yes (Hospitalization)
  Sender: FDA-Public Use
  Company Number: 163-20785-04060532

PATIENT
  Age: 58 Year
  Sex: Female
  Weight: 50.5 kg

DRUGS (7)
  1. THALOMID [Suspect]
     Indication: MULTIPLE MYELOMA
     Dosage: 200 MG, DAILY, ORAL
     Route: 048
     Dates: start: 20040403, end: 20040406
  2. BORTEZOMIB (BORTEZOMIB) (SOLUTION) [Suspect]
     Indication: MULTIPLE MYELOMA
     Dosage: 1.5 MG, 3 TIMES WEEKLY, INTRAVENOUS
     Route: 042
     Dates: start: 20040512, end: 20040519
  3. DEXAMETHASONE [Suspect]
     Indication: MULTIPLE MYELOMA
     Dosage: 40 MG, QD, ORAL
     Route: 048
     Dates: start: 20040515, end: 20040519
  4. CISPLATIN [Suspect]
     Indication: MULTIPLE MYELOMA
     Dosage: 15 MG, QD, INTRAVENOUS
     Route: 042
     Dates: start: 20040403, end: 20040406
  5. ADRIAMYCIN PFS [Suspect]
     Indication: MULTIPLE MYELOMA
     Dosage: 15 MG, QD, INTRAVENOUS
     Route: 042
     Dates: start: 20040403, end: 20040406
  6. CYCLOPHOSPHAMIDE [Suspect]
     Indication: MULTIPLE MYELOMA
     Dosage: 600 MG, QD, INTRAVENOUS
     Route: 042
     Dates: start: 20040403, end: 20040409
  7. ETOPOSIDE [Suspect]
     Indication: MULTIPLE MYELOMA
     Dosage: 60 MG, QD, INTRAVENOUS
     Route: 042
     Dates: start: 20040403, end: 20040406

REACTIONS (7)
  - ATELECTASIS [None]
  - CELLULITIS [None]
  - CHEST PAIN [None]
  - DYSPNOEA [None]
  - HYPOXIA [None]
  - LOBAR PNEUMONIA [None]
  - PNEUMOTHORAX [None]
